FAERS Safety Report 5826947-7 (Version None)
Quarter: 2008Q3

REPORT INFORMATION
  Report Type: 
  Country: None (occurrence: None)
  Receive Date: 20080730
  Receipt Date: 20080505
  Transmission Date: 20090109
  Serious: No
  Sender: FDA-Public Use
  Company Number: US-BAYER-200822661NA

PATIENT
  Age: 26 Year
  Sex: Female
  Weight: 67 kg

DRUGS (5)
  1. MIRENA [Suspect]
     Indication: GENITAL HAEMORRHAGE
     Route: 015
     Dates: start: 20080505
  2. LORTAB [Concomitant]
     Route: 048
     Dates: start: 20080401
  3. CELEXA [Concomitant]
     Dates: start: 20080401
  4. ABILIFY [Concomitant]
     Dates: start: 20080401
  5. PROGENTIN [Concomitant]
     Dates: start: 20080401

REACTIONS (3)
  - BACK PAIN [None]
  - PROCEDURAL PAIN [None]
  - PROCEDURAL VOMITING [None]
